FAERS Safety Report 25999429 (Version 1)
Quarter: 2025Q4

REPORT INFORMATION
  Report Type: Spontaneous
  Country: EU (occurrence: CA)
  Receive Date: 20251105
  Receipt Date: 20251105
  Transmission Date: 20260117
  Serious: Yes (Hospitalization, Other)
  Sender: STRIDES
  Company Number: EU-STRIDES ARCOLAB LIMITED-2025SP013810

PATIENT
  Age: 2 Month
  Sex: Female

DRUGS (12)
  1. VERAPAMIL [Suspect]
     Active Substance: VERAPAMIL HYDROCHLORIDE
     Indication: Noonan syndrome
     Dosage: UNK
     Route: 065
  2. VERAPAMIL [Suspect]
     Active Substance: VERAPAMIL HYDROCHLORIDE
     Indication: Hypertrophic cardiomyopathy
  3. DILTIAZEM [Suspect]
     Active Substance: DILTIAZEM
     Indication: Noonan syndrome
     Dosage: UNK
     Route: 065
  4. DILTIAZEM [Suspect]
     Active Substance: DILTIAZEM
     Indication: Hypertrophic cardiomyopathy
  5. FLECAINIDE [Suspect]
     Active Substance: FLECAINIDE
     Indication: Noonan syndrome
     Dosage: UNK
     Route: 065
  6. FLECAINIDE [Suspect]
     Active Substance: FLECAINIDE
     Indication: Hypertrophic cardiomyopathy
  7. NADOLOL [Suspect]
     Active Substance: NADOLOL
     Indication: Noonan syndrome
     Dosage: UNK
     Route: 065
  8. NADOLOL [Suspect]
     Active Substance: NADOLOL
     Indication: Hypertrophic cardiomyopathy
  9. CHLOROTHIAZIDE [Suspect]
     Active Substance: CHLOROTHIAZIDE
     Indication: Noonan syndrome
     Dosage: UNK
     Route: 065
  10. CHLOROTHIAZIDE [Suspect]
     Active Substance: CHLOROTHIAZIDE
     Indication: Hypertrophic cardiomyopathy
  11. AMIODARONE [Suspect]
     Active Substance: AMIODARONE
     Indication: Noonan syndrome
     Dosage: UNK
     Route: 065
  12. AMIODARONE [Suspect]
     Active Substance: AMIODARONE
     Indication: Hypertrophic cardiomyopathy

REACTIONS (3)
  - Cardiac arrest [Recovering/Resolving]
  - Atrial tachycardia [Recovering/Resolving]
  - Drug ineffective for unapproved indication [Unknown]
